FAERS Safety Report 24166318 (Version 1)
Quarter: 2024Q3

REPORT INFORMATION
  Report Type: Other
  Country: GB (occurrence: GB)
  Receive Date: 20240802
  Receipt Date: 20240802
  Transmission Date: 20241017
  Serious: Yes (Other)
  Sender: MACLEODS
  Company Number: GB-MHRA-MIDB-12cf47a7-7140-475f-b81e-a5d07502392c

PATIENT

DRUGS (14)
  1. LEVOFLOXACIN [Suspect]
     Active Substance: LEVOFLOXACIN
     Indication: Product used for unknown indication
     Dosage: MORNING, 1 DAY
     Route: 065
  2. LINEZOLID [Suspect]
     Active Substance: LINEZOLID
     Indication: Product used for unknown indication
     Dosage: MORNING, 1 DAY
     Route: 065
  3. CLOFAZIMINE [Suspect]
     Active Substance: CLOFAZIMINE
     Indication: Product used for unknown indication
     Dosage: 50 MG CAPSULES TWO MORNING, 1 DAY
     Route: 065
  4. PYRIDOXINE [Concomitant]
     Active Substance: PYRIDOXINE
     Indication: Product used for unknown indication
     Dosage: ONE TWICE A DAY MORNING AND TEATIME
     Route: 065
  5. BEDAQUILINE [Concomitant]
     Active Substance: BEDAQUILINE
     Indication: Product used for unknown indication
     Dosage: BEDAQUILINE 100MG TABLETS 400MG AT TEATIME UNTIL 16/11/23 THEN 200MG THREE TIMES A WEEK ON MONDAY,
     Route: 065
     Dates: end: 20231116
  6. BEDAQUILINE [Concomitant]
     Active Substance: BEDAQUILINE
     Dosage: BEDAQUILINE 100MG TABLETS 400MG AT TEATIME UNTIL 16/11/23 THEN 200MG THREE TIMES A WEEK ON MONDAY,
     Route: 065
     Dates: start: 20231117
  7. DEXAMETHASONE [Concomitant]
     Active Substance: DEXAMETHASONE
     Indication: Product used for unknown indication
     Dosage: DEXAMETASONE 4MG TWICE A DAY MORNING AND LUNCHTIME FOR 4 DAYS THEN 4MG MORNING FOR 7 DAYS
     Route: 065
  8. DEXAMETHASONE [Concomitant]
     Active Substance: DEXAMETHASONE
     Dosage: DEXAMETASONE 4MG TWICE A DAY MORNING AND LUNCHTIME FOR 4 DAYS THEN 4MG MORNING FOR 7 DAYS
     Route: 065
  9. DEXAMETHASONE [Concomitant]
     Active Substance: DEXAMETHASONE
     Dosage: DEXAMETASONE 4MG TWICE A DAY MORNING AND LUNCHTIME FOR 4 DAYS THEN 4MG MORNING FOR 7 DAYS
     Route: 065
  10. DEXAMETHASONE [Concomitant]
     Active Substance: DEXAMETHASONE
     Dosage: DEXAMETASONE 4MG TWICE A DAY MORNING AND LUNCHTIME FOR 4 DAYS THEN 4MG MORNING FOR 7 DAYS
     Route: 065
  11. DEXAMETHASONE [Concomitant]
     Active Substance: DEXAMETHASONE
     Dosage: DEXAMETASONE 4MG TWICE A DAY MORNING AND LUNCHTIME FOR 4 DAYS THEN 4MG MORNING FOR 7 DAYS
     Route: 065
  12. ACETAMINOPHEN [Concomitant]
     Active Substance: ACETAMINOPHEN
     Indication: Product used for unknown indication
     Dosage: 500MG TABLETS. TWO FOUR TIMES A DAY WHEN REQUIRED
     Route: 065
  13. LANSOPRAZOLE [Concomitant]
     Active Substance: LANSOPRAZOLE
     Indication: Product used for unknown indication
     Dosage: MORNING, 1 DAY
     Route: 065
  14. CYCLOSERINE [Concomitant]
     Active Substance: CYCLOSERINE
     Indication: Product used for unknown indication
     Route: 065

REACTIONS (2)
  - Drug-induced liver injury [Recovered/Resolved]
  - Liver function test abnormal [Unknown]
